FAERS Safety Report 9723726 (Version 1)
Quarter: 2013Q4

REPORT INFORMATION
  Report Type: Spontaneous
  Country: US (occurrence: US)
  Receive Date: 20131202
  Receipt Date: 20131202
  Transmission Date: 20140711
  Serious: Yes (Other)
  Sender: FDA-Public Use
  Company Number: US-PFIZER INC-2013339892

PATIENT
  Age: 56 Year
  Sex: Female
  Weight: 68.03 kg

DRUGS (7)
  1. LYRICA [Suspect]
     Indication: FIBROMYALGIA
     Dosage: 75 MG, 2X/DAY
     Route: 048
  2. LYRICA [Suspect]
     Indication: RESTLESS LEGS SYNDROME
     Dosage: 150 MG, 2X/DAY
     Route: 048
  3. LYRICA [Suspect]
     Indication: NERVE INJURY
     Dosage: 275 MG, 1X/DAY
     Route: 048
  4. IRON [Concomitant]
     Dosage: UNK, 1X/DAY
  5. IBUPROFEN [Concomitant]
     Indication: ARTHRALGIA
     Dosage: UNK, 2X/DAY
  6. IBUPROFEN [Concomitant]
     Indication: ARTHRALGIA
  7. IBUPROFEN [Concomitant]
     Indication: ARTHRALGIA

REACTIONS (10)
  - Off label use [Unknown]
  - Menopause [Unknown]
  - Weight increased [Unknown]
  - Headache [Unknown]
  - Paraesthesia [Unknown]
  - Pain in extremity [Unknown]
  - Dyskinesia [Unknown]
  - Sensation of heaviness [Unknown]
  - Hypertension [Unknown]
  - Blood iron decreased [Unknown]
